FAERS Safety Report 8110614-3 (Version None)
Quarter: 2012Q1

REPORT INFORMATION
  Report Type: 
  Country: None (occurrence: None)
  Receive Date: 20120203
  Receipt Date: 20120130
  Transmission Date: 20120608
  Serious: No
  Sender: FDA-Public Use
  Company Number: US-PFIZER INC-2012026264

PATIENT
  Sex: Female
  Weight: 83 kg

DRUGS (4)
  1. LISINOPRIL [Suspect]
     Indication: HYPERTENSION
     Dosage: 20 MG, DAILY
     Dates: end: 20111101
  2. LORAZEPAM [Concomitant]
     Indication: ANXIETY
     Dosage: 2 MG, DAILY
  3. TRAZODONE [Concomitant]
     Indication: DEPRESSION
     Dosage: UNK
  4. NORVASC [Suspect]
     Indication: HYPERTENSION
     Dosage: 5 MG, DAILY
     Dates: start: 20110101, end: 20120128

REACTIONS (1)
  - BLOOD PRESSURE INCREASED [None]
